FAERS Safety Report 7715428-1 (Version None)
Quarter: 2011Q3

REPORT INFORMATION
  Report Type: 
  Country: None (occurrence: None)
  Receive Date: 20110829
  Receipt Date: 20110825
  Transmission Date: 20111222
  Serious: Yes (Hospitalization)
  Sender: FDA-Public Use
  Company Number: JP-ABBOTT-11P-087-0849114-00

PATIENT
  Age: 33 Year
  Sex: Female

DRUGS (3)
  1. CEFDINIR [Suspect]
     Indication: CYSTITIS
     Route: 048
  2. CEFDINIR [Suspect]
  3. CLARITHROMYCIN [Concomitant]
     Indication: PRODUCT USED FOR UNKNOWN INDICATION
     Route: 048

REACTIONS (2)
  - INTENTIONAL DRUG MISUSE [None]
  - PSEUDOMEMBRANOUS COLITIS [None]
